FAERS Safety Report 24027219 (Version 1)
Quarter: 2024Q2

REPORT INFORMATION
  Report Type: Spontaneous
  Country: JP (occurrence: JP)
  Receive Date: 20240628
  Receipt Date: 20240628
  Transmission Date: 20240716
  Serious: No
  Sender: FDA-Public Use
  Company Number: JP-SHIRE-JP201926870

PATIENT
  Age: 6 Year
  Sex: Male
  Weight: 19.5 kg

DRUGS (5)
  1. INTUNIV [Suspect]
     Active Substance: GUANFACINE HYDROCHLORIDE
     Indication: Attention deficit hyperactivity disorder
     Dosage: 1 MILLIGRAM
     Route: 048
     Dates: start: 20180302, end: 20180305
  2. AKINETON [Suspect]
     Active Substance: BIPERIDEN HYDROCHLORIDE
     Indication: Autism spectrum disorder
     Dosage: 1 MILLIGRAM
     Route: 048
     Dates: start: 20170210
  3. HALOPERIDOL [Suspect]
     Active Substance: HALOPERIDOL
     Indication: Autism spectrum disorder
     Dosage: 1 MILLIGRAM
     Route: 048
     Dates: start: 20170210
  4. HALOPERIDOL [Suspect]
     Active Substance: HALOPERIDOL
     Indication: Tic
  5. AKINETON [Suspect]
     Active Substance: BIPERIDEN HYDROCHLORIDE
     Indication: Tic

REACTIONS (2)
  - Somnolence [Not Recovered/Not Resolved]
  - Malaise [Recovered/Resolved]

NARRATIVE: CASE EVENT DATE: 20180302
